FAERS Safety Report 9969639 (Version 1)
Quarter: 2014Q1

REPORT INFORMATION
  Report Type: Spontaneous
  Country: US (occurrence: None)
  Receive Date: 20140304
  Receipt Date: 20140304
  Transmission Date: 20141002
  Serious: Yes (Hospitalization, Other)
  Sender: FDA-Public Use
  Company Number: None

PATIENT
  Age: 9 Year
  Sex: Male
  Weight: 21.4 kg

DRUGS (2)
  1. PHENYTOIN [Suspect]
     Indication: CONVULSION
     Dosage: 1 TAB EVERY 8 HOURS CRUSH AND ADMINSTER VIA G TUBE
     Dates: start: 20140128, end: 20140203
  2. PHENYTOIN [Suspect]
     Indication: CONVULSION
     Route: 042
     Dates: start: 20140127, end: 20140127

REACTIONS (5)
  - Dyskinesia [None]
  - Dystonia [None]
  - Otitis media [None]
  - Pupils unequal [None]
  - Computerised tomogram head abnormal [None]
